FAERS Safety Report 8881303 (Version 1)
Quarter: 2012Q4

REPORT INFORMATION
  Report Type: 
  Country: US (occurrence: US)
  Receive Date: 20121031
  Receipt Date: 20121031
  Transmission Date: 20130627
  Serious: Yes (Other)
  Sender: FDA-Public Use
  Company Number: US-JNJFOC-20121002760

PATIENT
  Sex: Female
  Weight: 58.06 kg

DRUGS (6)
  1. XARELTO [Suspect]
     Indication: CEREBROVASCULAR ACCIDENT PROPHYLAXIS
     Route: 048
  2. XARELTO [Suspect]
     Indication: CEREBROVASCULAR ACCIDENT PROPHYLAXIS
     Dosage: 1/4 tab daily (dosage decreased by patient)
     Route: 048
  3. XARELTO [Suspect]
     Indication: ATRIAL FIBRILLATION
     Route: 048
  4. XARELTO [Suspect]
     Indication: ATRIAL FIBRILLATION
     Dosage: 1/4 tab daily (dosage decreased by patient)
     Route: 048
  5. BABY ASPIRIN [Concomitant]
     Indication: ANTIPLATELET THERAPY
  6. CLOPIDOGREL [Concomitant]
     Indication: ANTIPLATELET THERAPY

REACTIONS (3)
  - Haemorrhoidal haemorrhage [Recovered/Resolved]
  - Gastrointestinal haemorrhage [Recovering/Resolving]
  - Drug administration error [Unknown]
